FAERS Safety Report 4746735-2 (Version None)
Quarter: 2005Q3

REPORT INFORMATION
  Report Type: 
  Country: None (occurrence: None)
  Receive Date: 20050817
  Receipt Date: 20050810
  Transmission Date: 20060218
  Serious: Yes (Other)
  Sender: FDA-Public Use
  Company Number: MY-GLAXOSMITHKLINE-B0390654A

PATIENT
  Age: 53 Year
  Sex: Male

DRUGS (1)
  1. ZINACEF [Suspect]
     Indication: INFECTION
     Dosage: 750MG UNKNOWN
     Route: 042
     Dates: start: 20050722, end: 20050723

REACTIONS (3)
  - APHASIA [None]
  - INFUSION SITE PAIN [None]
  - TONIC CONVULSION [None]
